FAERS Safety Report 4324654-3 (Version None)
Quarter: 2004Q1

REPORT INFORMATION
  Report Type: 
  Country: None (occurrence: None)
  Receive Date: 20040322
  Receipt Date: 20040309
  Transmission Date: 20041129
  Serious: Yes (Death, Hospitalization)
  Sender: FDA-Public Use
  Company Number: CA-JNJFOC-20040302321

PATIENT
  Age: 15 Year
  Sex: Female

DRUGS (4)
  1. DURAGESIC [Suspect]
     Indication: PAIN
     Dosage: 25 UG/HR, TRANSDERMAL
     Route: 062
     Dates: start: 20031001, end: 20031002
  2. TYLENOL W/ CODEINE NO. 3 [Suspect]
  3. AMOXICILLIN [Concomitant]
  4. MAXALT [Concomitant]

REACTIONS (5)
  - ANOXIC ENCEPHALOPATHY [None]
  - CARDIAC ARREST [None]
  - COMA [None]
  - HYPOVENTILATION [None]
  - PNEUMONIA [None]
